FAERS Safety Report 23067859 (Version 1)
Quarter: 2023Q4

REPORT INFORMATION
  Report Type: Spontaneous
  Country: US (occurrence: US)
  Receive Date: 20231016
  Receipt Date: 20231016
  Transmission Date: 20240109
  Serious: Yes (Hospitalization)
  Sender: FDA-Public Use
  Company Number: US-EPICPHARMA-US-2023EPCLIT01485

PATIENT
  Age: 35 Year
  Sex: Male

DRUGS (3)
  1. HYDROXYZINE HYDROCHLORIDE [Suspect]
     Active Substance: HYDROXYZINE HYDROCHLORIDE
     Indication: Anxiety
     Route: 048
  2. HYDROXYZINE HYDROCHLORIDE [Suspect]
     Active Substance: HYDROXYZINE HYDROCHLORIDE
     Indication: Insomnia
  3. RISPERIDONE [Suspect]
     Active Substance: RISPERIDONE
     Indication: Psychotic disorder
     Dosage: 2MG NIGHTLY AT BEDTIME, WHICH WAS TITRATED TO 4MG NIGHTLY BEFORE HIS HOSPITAL DISCHARGE
     Route: 048

REACTIONS (2)
  - Priapism [Recovered/Resolved]
  - Product use in unapproved indication [Unknown]
